FAERS Safety Report 5252247-2 (Version None)
Quarter: 2007Q1

REPORT INFORMATION
  Report Type: 
  Country: None (occurrence: None)
  Receive Date: 20070301
  Receipt Date: 20070221
  Transmission Date: 20070707
  Serious: Yes (Hospitalization)
  Sender: FDA-Public Use
  Company Number: US-JNJFOC-20061204828

PATIENT
  Sex: Male
  Weight: 97.07 kg

DRUGS (14)
  1. REMICADE [Suspect]
     Route: 042
  2. REMICADE [Suspect]
     Indication: DRUG USE FOR UNKNOWN INDICATION
     Dosage: EVERY SIX WEEKS FOR TWO YEARS
     Route: 042
  3. PREDNISONE [Concomitant]
  4. PLAQUENIL [Concomitant]
  5. MOBIC [Concomitant]
  6. MICARDIS [Concomitant]
  7. CALCIUM AND VITAMIN D [Concomitant]
  8. FOLIC ACID [Concomitant]
  9. PREVACID [Concomitant]
  10. FLEXERIL [Concomitant]
  11. LEXAPRO [Concomitant]
  12. ACTONEL [Concomitant]
  13. ALLEGRA [Concomitant]
  14. TYLENOL [Concomitant]

REACTIONS (7)
  - CLOSTRIDIUM DIFFICILE COLITIS [None]
  - CONVULSION [None]
  - DIABETES MELLITUS [None]
  - HAEMOLYTIC URAEMIC SYNDROME [None]
  - RENAL FAILURE [None]
  - STAPHYLOCOCCAL INFECTION [None]
  - THROMBOPHLEBITIS SUPERFICIAL [None]
